FAERS Safety Report 14995350 (Version 1)
Quarter: 2018Q2

REPORT INFORMATION
  Report Type: Spontaneous
  Country: US (occurrence: US)
  Receive Date: 20180521
  Receipt Date: 20180521
  Transmission Date: 20180711
  Serious: No
  Sender: FDA-Public Use
  Company Number: None

PATIENT
  Age: 72 Year
  Sex: Female

DRUGS (15)
  1. NORTHERA [Suspect]
     Active Substance: DROXIDOPA
     Route: 048
     Dates: start: 20180207
  2. METYOCLOPRAM [Concomitant]
  3. LEVOTHROXIN [Concomitant]
  4. PAREGORIC [Concomitant]
     Active Substance: MORPHINE
  5. OXYCODONE [Concomitant]
     Active Substance: OXYCODONE
  6. TIZANIDINE. [Concomitant]
     Active Substance: TIZANIDINE
  7. FENTANYL. [Concomitant]
     Active Substance: FENTANYL
  8. ONDANSETRON [Concomitant]
     Active Substance: ONDANSETRON
  9. LEVABUTEROL [Concomitant]
  10. PREDNISONE. [Concomitant]
     Active Substance: PREDNISONE
  11. DICLOMINE [Concomitant]
  12. DIAZEPAM. [Concomitant]
     Active Substance: DIAZEPAM
  13. FLUDROCORT [Concomitant]
  14. PROMETHAZINE [Concomitant]
     Active Substance: PROMETHAZINE\PROMETHAZINE HYDROCHLORIDE
  15. DIPHEN/ATROP [Concomitant]
     Active Substance: ATROPINE SULFATE\DIPHENOXYLATE

REACTIONS (2)
  - Vomiting [None]
  - Weight decreased [None]

NARRATIVE: CASE EVENT DATE: 20180518
